FAERS Safety Report 19218808 (Version 12)
Quarter: 2021Q4

REPORT INFORMATION
  Report Type: Report from Study
  Country: GB (occurrence: GB)
  Receive Date: 20210505
  Receipt Date: 20211231
  Transmission Date: 20220303
  Serious: Yes (Death, Congenital Anomaly, Other)
  Sender: FDA-Public Use
  Company Number: GB-GLAXOSMITHKLINE-GB2021GSK097374

PATIENT
  Sex: Female
  Weight: 2.5 kg

DRUGS (7)
  1. ABACAVIR SULFATE\LAMIVUDINE [Suspect]
     Active Substance: ABACAVIR SULFATE\LAMIVUDINE
     Indication: HIV infection
     Dosage: 1 DF (TABLET) , QD
     Route: 064
     Dates: start: 20200601, end: 20200801
  2. DESCOVY [Suspect]
     Active Substance: EMTRICITABINE\TENOFOVIR ALAFENAMIDE FUMARATE
     Indication: HIV infection
     Dosage: 1 DF (TABLET), QD
     Route: 064
     Dates: end: 20200601
  3. RITONAVIR [Suspect]
     Active Substance: RITONAVIR
     Indication: HIV infection
     Dosage: 1 DF (TABLET), QD
     Route: 064
     Dates: start: 20200601, end: 20200801
  4. REYATAZ [Suspect]
     Active Substance: ATAZANAVIR SULFATE
     Indication: HIV infection
     Dosage: 1 DF (TABLET), QD
     Route: 064
     Dates: start: 20200601, end: 20200801
  5. TRUVADA [Suspect]
     Active Substance: EMTRICITABINE\TENOFOVIR DISOPROXIL FUMARATE
     Indication: HIV infection
     Dosage: 1 DF(TABLET), QD
     Route: 064
     Dates: end: 20200601
  6. TRUVADA [Suspect]
     Active Substance: EMTRICITABINE\TENOFOVIR DISOPROXIL FUMARATE
     Dosage: 1 DF (TABLET), QD
     Route: 064
     Dates: start: 20200801
  7. ISENTRESS [Suspect]
     Active Substance: RALTEGRAVIR POTASSIUM
     Indication: HIV infection
     Dosage: 1 DF (TABLET), QD
     Route: 064
     Dates: start: 20200801

REACTIONS (5)
  - Death [Fatal]
  - Spina bifida [Unknown]
  - Congenital hydrocephalus [Unknown]
  - Premature baby [Unknown]
  - Foetal exposure during pregnancy [Recovered/Resolved]

NARRATIVE: CASE EVENT DATE: 20200101
